FAERS Safety Report 21686683 (Version 1)
Quarter: 2022Q4

REPORT INFORMATION
  Report Type: Spontaneous
  Country: IN (occurrence: None)
  Receive Date: 20221206
  Receipt Date: 20221206
  Transmission Date: 20230113
  Serious: Yes (Other)
  Sender: FDA-Public Use
  Company Number: IN-VistaPharm, Inc.-VER202211-000978

PATIENT
  Sex: Female

DRUGS (2)
  1. PHENYTOIN [Suspect]
     Active Substance: PHENYTOIN
     Indication: Seizure
     Dosage: UNKNOWN
     Route: 065
  2. LEVETIRACETAM [Concomitant]
     Active Substance: LEVETIRACETAM
     Indication: Seizure
     Dosage: UNKNOWN
     Route: 065

REACTIONS (6)
  - Central hypothyroidism [Recovered/Resolved]
  - Rickets [Recovering/Resolving]
  - Cerebellar atrophy [Unknown]
  - Toxicity to various agents [Unknown]
  - Dwarfism [Recovering/Resolving]
  - Gingival hypertrophy [Unknown]
